FAERS Safety Report 12759926 (Version 1)
Quarter: 2016Q3

REPORT INFORMATION
  Report Type: Spontaneous
  Country: US (occurrence: US)
  Receive Date: 20160919
  Receipt Date: 20160919
  Transmission Date: 20161109
  Serious: Yes (Other)
  Sender: FDA-Public Use
  Company Number: US-PRAGMA PHARMACEUTICALS, LLC-2016PRG00307

PATIENT
  Age: 64 Year
  Sex: Female
  Weight: 69.39 kg

DRUGS (14)
  1. ADVAIR HFA [Concomitant]
     Active Substance: FLUTICASONE PROPIONATE\SALMETEROL XINAFOATE
     Dosage: 1 DOSAGE UNITS, AS NEEDED
  2. PROMACTA [Concomitant]
     Active Substance: ELTROMBOPAG OLAMINE
     Dosage: UNK
     Dates: end: 201608
  3. KEFLEX [Suspect]
     Active Substance: CEPHALEXIN
     Route: 048
  4. PATADAY [Concomitant]
     Active Substance: OLOPATADINE HYDROCHLORIDE
     Dosage: UNK, AS NEEDED
  5. PROBIOTIC OTC [Concomitant]
  6. TYLENOL PM [Concomitant]
     Active Substance: ACETAMINOPHEN\DIPHENHYDRAMINE
  7. DIAZEPAM. [Concomitant]
     Active Substance: DIAZEPAM
     Dosage: 5 MG, UNK
  8. PROLIA [Concomitant]
     Active Substance: DENOSUMAB
  9. PROZAC [Concomitant]
     Active Substance: FLUOXETINE HYDROCHLORIDE
     Dosage: 10 MG, EVERY 48 HOURS
  10. OPTI-FREE EYE DROPS (OTC) [Concomitant]
     Dosage: PRN
  11. XOPENEX [Concomitant]
     Active Substance: LEVALBUTEROL HYDROCHLORIDE
     Dosage: UNK DOSAGE UNITS, UNK
  12. TOPAMAX [Suspect]
     Active Substance: TOPIRAMATE
  13. RESTASIS [Concomitant]
     Active Substance: CYCLOSPORINE
     Route: 047
  14. ORGANIC DIGESTIVE [Concomitant]

REACTIONS (3)
  - Drug hypersensitivity [Unknown]
  - Splenectomy [Unknown]
  - Asthma [Recovered/Resolved]

NARRATIVE: CASE EVENT DATE: 20160818
